FAERS Safety Report 6244315-3 (Version None)
Quarter: 2009Q2

REPORT INFORMATION
  Report Type: 
  Country: None (occurrence: None)
  Receive Date: 20090623
  Receipt Date: 20090611
  Transmission Date: 20091009
  Serious: Yes (Other)
  Sender: FDA-Public Use
  Company Number: GXKR2009GB06816

PATIENT

DRUGS (2)
  1. DICLOFENAC (NGX) (DICLOFENAC) UNKNOWN [Suspect]
     Indication: PAIN
  2. ANTITHROMBOTIC AGENTS (NO INGREDIENTS/SUBSTANCES) [Suspect]
     Indication: KNEE ARTHROPLASTY

REACTIONS (5)
  - HAEMARTHROSIS [None]
  - POST PROCEDURAL HAEMORRHAGE [None]
  - SWELLING [None]
  - WOUND COMPLICATION [None]
  - WOUND SECRETION [None]
